FAERS Safety Report 4507955-5 (Version None)
Quarter: 2004Q4

REPORT INFORMATION
  Report Type: 
  Country: None (occurrence: None)
  Receive Date: 20041122
  Receipt Date: 20041122
  Transmission Date: 20050328
  Serious: Yes (Other)
  Sender: FDA-Public Use
  Company Number: None

PATIENT
  Age: 56 Year
  Sex: Female
  Weight: 58.514 kg

DRUGS (1)
  1. PROVIGIL [Suspect]
     Indication: FATIGUE
     Dosage: 200 MG -1 DAILY

REACTIONS (6)
  - ABASIA [None]
  - ANXIETY [None]
  - HEART RATE INCREASED [None]
  - NERVOUSNESS [None]
  - SPEECH DISORDER [None]
  - THINKING ABNORMAL [None]
